FAERS Safety Report 5144092-3 (Version None)
Quarter: 2006Q4

REPORT INFORMATION
  Report Type: 
  Country: None (occurrence: None)
  Receive Date: 20061106
  Receipt Date: 20061027
  Transmission Date: 20070319
  Serious: Yes (Hospitalization)
  Sender: FDA-Public Use
  Company Number: FR-GLAXOSMITHKLINE-B0445233A

PATIENT
  Age: 74 Year
  Sex: Male

DRUGS (5)
  1. AUGMENTIN '125' [Suspect]
     Indication: ACUTE SINUSITIS
     Route: 048
     Dates: start: 20060610, end: 20060615
  2. ALDACTONE [Concomitant]
     Indication: ESSENTIAL HYPERTENSION
     Dosage: 25MG PER DAY
     Route: 048
  3. ZOLOFT [Concomitant]
     Dosage: 1UNIT PER DAY
     Route: 048
  4. CELECTOL [Concomitant]
     Indication: ESSENTIAL HYPERTENSION
     Dosage: 100MG PER DAY
     Route: 048
  5. LASIX [Concomitant]
     Indication: ESSENTIAL HYPERTENSION
     Dosage: 1UNIT PER DAY
     Route: 048

REACTIONS (5)
  - BACTERIA STOOL IDENTIFIED [None]
  - COLITIS [None]
  - DIARRHOEA [None]
  - PSEUDOMEMBRANOUS COLITIS [None]
  - PYREXIA [None]
